FAERS Safety Report 26002338 (Version 2)
Quarter: 2025Q4

REPORT INFORMATION
  Report Type: Report from Study
  Country: CA (occurrence: CA)
  Receive Date: 20251105
  Receipt Date: 20251225
  Transmission Date: 20260117
  Serious: Yes (Other)
  Sender: CELLTRION
  Company Number: CA-CELLTRION INC.-2025CA019897

PATIENT

DRUGS (4)
  1. INFLIXIMAB-DYYB [Suspect]
     Active Substance: INFLIXIMAB-DYYB
     Indication: Crohn^s disease
     Dosage: 500 MG, EVERY 6 WEEKS (MAINTENANCE)
     Route: 042
     Dates: start: 20250618
  2. INFLIXIMAB-DYYB [Suspect]
     Active Substance: INFLIXIMAB-DYYB
     Dosage: NEW MAINTENANCE 500MG  EVERY 4 WEEKS RAPID INFUSION
     Route: 042
     Dates: start: 20251022
  3. INFLIXIMAB-DYYB [Suspect]
     Active Substance: INFLIXIMAB-DYYB
     Dosage: NEW MAINTENANCE 500MG  EVERY 4 WEEKS RAPID INFUSION
     Route: 042
     Dates: start: 20251120
  4. INFLIXIMAB-DYYB [Suspect]
     Active Substance: INFLIXIMAB-DYYB
     Dosage: NEW MAINTENANCE 500MG  EVERY 4 WEEKS RAPID INFUSION
     Route: 042
     Dates: start: 20251216

REACTIONS (8)
  - Crohn^s disease [Unknown]
  - Loss of consciousness [Not Recovered/Not Resolved]
  - Harvey-Bradshaw index increased [Unknown]
  - Tinnitus [Not Recovered/Not Resolved]
  - Abscess [Unknown]
  - Inappropriate schedule of product administration [Unknown]
  - Off label use [Unknown]
  - Inappropriate schedule of product administration [Not Recovered/Not Resolved]

NARRATIVE: CASE EVENT DATE: 20250101
